FAERS Safety Report 7423651-9 (Version None)
Quarter: 2011Q2

REPORT INFORMATION
  Report Type: 
  Country: None (occurrence: None)
  Receive Date: 20110419
  Receipt Date: 20110411
  Transmission Date: 20111010
  Serious: Yes (Death, Hospitalization, Other)
  Sender: FDA-Public Use
  Company Number: AU-ACTELION-A-CH2010-41512

PATIENT
  Sex: Female
  Weight: 60 kg

DRUGS (5)
  1. AMIODARONE [Suspect]
  2. TRACLEER [Suspect]
     Indication: PULMONARY ARTERIAL HYPERTENSION
     Dosage: 125 MG, BID
     Route: 048
     Dates: start: 20040101, end: 20110401
  3. SILDENAFIL [Concomitant]
  4. FUROSEMIDE [Concomitant]
  5. POTASSIUM CHLORIDE [Concomitant]

REACTIONS (12)
  - ASCITES [None]
  - ALANINE AMINOTRANSFERASE INCREASED [None]
  - BLOOD BILIRUBIN INCREASED [None]
  - LIVER FUNCTION TEST ABNORMAL [None]
  - CONDITION AGGRAVATED [None]
  - ATRIAL FIBRILLATION [None]
  - RIGHT VENTRICULAR FAILURE [None]
  - CARDIAC ARREST [None]
  - DYSPNOEA [None]
  - BLOOD ALKALINE PHOSPHATASE INCREASED [None]
  - PULMONARY ARTERIAL HYPERTENSION [None]
  - CYANOSIS [None]
